FAERS Safety Report 12639783 (Version 2)
Quarter: 2016Q3

REPORT INFORMATION
  Report Type: Spontaneous
  Country: IT (occurrence: IT)
  Receive Date: 20160810
  Receipt Date: 20160907
  Transmission Date: 20161109
  Serious: Yes (Hospitalization)
  Sender: FDA-Public Use
  Company Number: IT-ACCORD-042983

PATIENT
  Age: 26 Year
  Sex: Male
  Weight: 80 kg

DRUGS (4)
  1. MINOXIDIL. [Suspect]
     Active Substance: MINOXIDIL
     Indication: ANDROGENETIC ALOPECIA
     Dosage: MINOXIDIL WAS ADMINISTERED AS A SINGLE WATER-ALCOHOL SOLUTION.?HYDRO-ALCOHOLIC CUTANEOUS SOLUTION
     Route: 061
     Dates: start: 20151101, end: 20160525
  2. FINASTERIDE. [Suspect]
     Active Substance: FINASTERIDE
     Indication: ANDROGENETIC ALOPECIA
     Dosage: HYDRO-ALCOHOLIC CUTANEOUS SOLUTION
     Route: 048
  3. ESTRADIOL. [Suspect]
     Active Substance: ESTRADIOL
     Indication: ANDROGENETIC ALOPECIA
     Dosage: ALPHA ESTRADIOL WAS ADMINISTERED AS A SINGLE WATER-ALCOHOL SOLUTION.?HYDRO-ALCOHOLIC
     Route: 061
     Dates: start: 20151101, end: 20160525
  4. HYDROXYPROGESTERONE [Suspect]
     Active Substance: HYDROXYPROGESTERONE
     Indication: ANDROGENETIC ALOPECIA
     Dosage: PROGESTERONE WAS ADMINISTERED AS A SINGLE WATER-ALCOHOL SOLUTION.?HYDRO-ALCOHOLIC CUTANEOUS SOLUTIO
     Route: 061
     Dates: start: 20151101, end: 20160525

REACTIONS (2)
  - Venous thrombosis [Recovered/Resolved]
  - Cerebral infarction [Recovered/Resolved with Sequelae]

NARRATIVE: CASE EVENT DATE: 20160525
